FAERS Safety Report 10208183 (Version 1)
Quarter: 2014Q2

REPORT INFORMATION
  Report Type: Spontaneous
  Country: US (occurrence: US)
  Receive Date: 20140530
  Receipt Date: 20140530
  Transmission Date: 20141212
  Serious: No
  Sender: FDA-Public Use
  Company Number: US-PURDUE-USA-2013-0107954

PATIENT
  Age: 33 Year
  Sex: 0

DRUGS (1)
  1. MS CONTIN TABLETS [Suspect]
     Indication: PAIN
     Dosage: UNK
     Route: 048
     Dates: start: 2010

REACTIONS (4)
  - Feeling abnormal [Unknown]
  - Drug ineffective [Unknown]
  - Drug tolerance [Unknown]
  - Malaise [Unknown]
